FAERS Safety Report 14289370 (Version 1)
Quarter: 2017Q4

REPORT INFORMATION
  Report Type: Spontaneous
  Country: IR (occurrence: IR)
  Receive Date: 20171215
  Receipt Date: 20171215
  Transmission Date: 20180321
  Serious: Yes (Hospitalization)
  Sender: FDA-Public Use
  Company Number: IR-UNICHEM PHARMACEUTICALS (USA) INC-UCM201712-000311

PATIENT
  Age: 34 Year
  Sex: Male

DRUGS (6)
  1. QUETIAPINE. [Suspect]
     Active Substance: QUETIAPINE
  2. DIVALPROEX SODIUM. [Suspect]
     Active Substance: DIVALPROEX SODIUM
  3. BIPERIDEN [Concomitant]
     Active Substance: BIPERIDEN
  4. PERPHENAZINE. [Concomitant]
     Active Substance: PERPHENAZINE
  5. QUETIAPINE. [Suspect]
     Active Substance: QUETIAPINE
  6. QUETIAPINE. [Suspect]
     Active Substance: QUETIAPINE

REACTIONS (4)
  - Drug ineffective [Unknown]
  - Blood creatinine increased [Recovering/Resolving]
  - Urinary incontinence [Recovered/Resolved]
  - Lethargy [Unknown]
